FAERS Safety Report 10188071 (Version 3)
Quarter: 2014Q3

REPORT INFORMATION
  Report Type: Spontaneous
  Country: GR (occurrence: GR)
  Receive Date: 20140522
  Receipt Date: 20140703
  Transmission Date: 20150326
  Serious: Yes (Other)
  Sender: FDA-Public Use
  Company Number: GR-NOVOPROD-410142

PATIENT
  Age: 80 Year
  Sex: Female

DRUGS (3)
  1. PROTAPHANE [Suspect]
     Active Substance: INSULIN HUMAN
     Dosage: UNK
     Route: 058
  2. PROTAPHANE [Suspect]
     Active Substance: INSULIN HUMAN
     Indication: TYPE 2 DIABETES MELLITUS
     Dosage: 70-71U PER DAY (30U AT 09:30, 14-15U AT NOON AND 26U EVENING)
     Route: 058
  3. PROTAPHANE [Suspect]
     Active Substance: INSULIN HUMAN
     Dosage: 14 U + 8 U
     Route: 058
     Dates: start: 20140507

REACTIONS (6)
  - Blindness [Recovered/Resolved]
  - Malaise [Recovered/Resolved]
  - Vertigo [Recovered/Resolved]
  - Chills [Recovered/Resolved]
  - Loss of consciousness [Recovered/Resolved]
  - Product outer packaging issue [Unknown]

NARRATIVE: CASE EVENT DATE: 20140507
